FAERS Safety Report 23982556 (Version 3)
Quarter: 2024Q2

REPORT INFORMATION
  Report Type: Spontaneous
  Country: ES (occurrence: ES)
  Receive Date: 20240617
  Receipt Date: 20240625
  Transmission Date: 20240716
  Serious: Yes (Life-Threatening, Hospitalization, Other)
  Sender: FDA-Public Use
  Company Number: ES-PFIZER INC-2003011086

PATIENT
  Age: 67 Year
  Sex: Male

DRUGS (3)
  1. GEMFIBROZIL [Interacting]
     Active Substance: GEMFIBROZIL
     Indication: Hyperlipidaemia
     Dosage: 1200 MG, DAILY
     Route: 065
  2. GEMFIBROZIL [Interacting]
     Active Substance: GEMFIBROZIL
     Dosage: 900 MG, DAILY
  3. CERIVASTATIN [Interacting]
     Active Substance: CERIVASTATIN
     Indication: Ill-defined disorder
     Dosage: 0.2 MG, DAILY
     Route: 065

REACTIONS (3)
  - Drug interaction [Recovering/Resolving]
  - Rhabdomyolysis [Unknown]
  - Renal failure [Recovering/Resolving]
